FAERS Safety Report 17197484 (Version 1)
Quarter: 2019Q4

REPORT INFORMATION
  Report Type: Spontaneous
  Country: JP (occurrence: JP)
  Receive Date: 20191224
  Receipt Date: 20191224
  Transmission Date: 20200122
  Serious: Yes (Other)
  Sender: FDA-Public Use
  Company Number: JP-JNJFOC-20191229974

PATIENT
  Age: 81 Year
  Sex: Male

DRUGS (1)
  1. RIVAROXABAN [Suspect]
     Active Substance: RIVAROXABAN
     Indication: ATRIAL FIBRILLATION
     Dosage: 10MG/DAILY, QOD
     Route: 048

REACTIONS (5)
  - Off label use [Unknown]
  - Intentional product use issue [Unknown]
  - Deep vein thrombosis [Unknown]
  - Inappropriate schedule of product administration [Unknown]
  - Increased tendency to bruise [Unknown]
